FAERS Safety Report 20718569 (Version 2)
Quarter: 2022Q2

REPORT INFORMATION
  Report Type: Report from Study
  Country: CA (occurrence: CA)
  Receive Date: 20220418
  Receipt Date: 20220422
  Transmission Date: 20220721
  Serious: Yes (Other)
  Sender: FDA-Public Use
  Company Number: CA-UCBSA-2022021594

PATIENT
  Sex: Female

DRUGS (3)
  1. CERTOLIZUMAB PEGOL [Suspect]
     Active Substance: CERTOLIZUMAB PEGOL
     Indication: Psoriasis
     Dosage: 400 MILLIGRAM, EV 2 WEEKS(QOW)
     Route: 058
     Dates: start: 20210219
  2. KEFLEX [Concomitant]
     Active Substance: CEPHALEXIN
     Indication: Hordeolum
     Dosage: UNK, WEEKLY (QW)
  3. KEFLEX [Concomitant]
     Active Substance: CEPHALEXIN
     Indication: Ingrowing nail

REACTIONS (3)
  - Hordeolum [Recovered/Resolved]
  - Ingrowing nail [Recovering/Resolving]
  - Nail bed bleeding [Unknown]

NARRATIVE: CASE EVENT DATE: 20220101
